FAERS Safety Report 11714387 (Version 1)
Quarter: 2015Q4

REPORT INFORMATION
  Report Type: Spontaneous
  Country: GB (occurrence: GB)
  Receive Date: 20151109
  Receipt Date: 20151109
  Transmission Date: 20160304
  Serious: Yes (Other)
  Sender: FDA-Public Use
  Company Number: GB-PFIZER INC-2015373691

PATIENT
  Age: 24 Year
  Sex: Male
  Weight: 87 kg

DRUGS (1)
  1. CLINDAMYCIN HCL [Suspect]
     Active Substance: CLINDAMYCIN HYDROCHLORIDE
     Indication: SKIN INFECTION
     Dosage: 600 MG, 4X/DAY
     Route: 048
     Dates: start: 20151007, end: 20151011

REACTIONS (5)
  - Abdominal pain upper [Unknown]
  - Dyspepsia [Unknown]
  - Oesophageal ulcer [Recovering/Resolving]
  - Gastrooesophageal reflux disease [Unknown]
  - Odynophagia [Unknown]

NARRATIVE: CASE EVENT DATE: 20151009
